FAERS Safety Report 4464870-3 (Version None)
Quarter: 2004Q4

REPORT INFORMATION
  Report Type: 
  Country: None (occurrence: None)
  Receive Date: 20041004
  Receipt Date: 20031205
  Transmission Date: 20050328
  Serious: No
  Sender: FDA-Public Use
  Company Number: 356704

PATIENT
  Age: 87 Year
  Sex: Male
  Weight: 52.3 kg

DRUGS (1)
  1. COREG [Suspect]
     Dosage: 6.25MG TWICE PER DAY
     Route: 048

REACTIONS (2)
  - DIARRHOEA [None]
  - INCONTINENCE [None]
